FAERS Safety Report 23967783 (Version 1)
Quarter: 2024Q2

REPORT INFORMATION
  Report Type: Spontaneous
  Country: KR (occurrence: KR)
  Receive Date: 20240612
  Receipt Date: 20240612
  Transmission Date: 20240716
  Serious: Yes (Other)
  Sender: FDA-Public Use
  Company Number: KR-BAYER-2024A083899

PATIENT
  Age: 46 Year
  Sex: Female

DRUGS (4)
  1. ANGELIQ [Suspect]
     Active Substance: DROSPIRENONE\ESTRADIOL
     Dosage: UNK
     Route: 048
     Dates: start: 20230915, end: 20230919
  2. TINIDAZOLE NAMYANG [Concomitant]
     Dosage: UNK
     Dates: start: 20230915, end: 20230915
  3. DEXIBUPROFEN [Concomitant]
     Active Substance: DEXIBUPROFEN
     Dosage: UNK
     Dates: start: 20230915, end: 20230915
  4. MEQUITAZINE [Concomitant]
     Active Substance: MEQUITAZINE
     Dosage: UNK
     Dates: start: 20230915, end: 20230915

REACTIONS (1)
  - Haemorrhage [Recovered/Resolved]

NARRATIVE: CASE EVENT DATE: 20230915
